FAERS Safety Report 16440330 (Version 2)
Quarter: 2019Q2

REPORT INFORMATION
  Report Type: Spontaneous
  Country: PT (occurrence: PT)
  Receive Date: 20190617
  Receipt Date: 20190621
  Transmission Date: 20190711
  Serious: Yes (Other)
  Sender: FDA-Public Use
  Company Number: PT-MYLANLABS-2019M1006917

PATIENT
  Age: 85 Year
  Sex: Female

DRUGS (2)
  1. OLANZAPINE. [Suspect]
     Active Substance: OLANZAPINE
     Indication: RESTLESSNESS
  2. OLANZAPINE. [Suspect]
     Active Substance: OLANZAPINE
     Indication: CONFUSIONAL STATE
     Dosage: 7.5 MILLIGRAM, QD
     Route: 065

REACTIONS (3)
  - Leukopenia [Recovered/Resolved]
  - Product use in unapproved indication [Unknown]
  - Neutropenia [Recovered/Resolved]
